FAERS Safety Report 6060361-7 (Version None)
Quarter: 2009Q1

REPORT INFORMATION
  Report Type: 
  Country: None (occurrence: None)
  Receive Date: 20090130
  Receipt Date: 20090130
  Transmission Date: 20090719
  Serious: Yes (Other)
  Sender: FDA-Public Use
  Company Number: None

PATIENT
  Age: 58 Year
  Sex: Female
  Weight: 72.5755 kg

DRUGS (1)
  1. METOPROLOL SUCCINATE EXTENDED RELEASE [Suspect]
     Indication: BLOOD PRESSURE INCREASED
     Dosage: 50 MG ONCE A DAY PO
     Route: 048
     Dates: start: 20090113, end: 20090114

REACTIONS (4)
  - HEART RATE DECREASED [None]
  - HYPERTENSION [None]
  - STRESS [None]
  - VENTRICULAR EXTRASYSTOLES [None]
